FAERS Safety Report 24833252 (Version 1)
Quarter: 2025Q1

REPORT INFORMATION
  Report Type: Spontaneous
  Country: US (occurrence: US)
  Receive Date: 20250111
  Receipt Date: 20250111
  Transmission Date: 20250408
  Serious: Yes (Hospitalization)
  Sender: ACCORD
  Company Number: US-MLMSERVICE-20241226-PI325968-00232-1

PATIENT
  Age: 62 Year
  Sex: Female

DRUGS (2)
  1. MYCOPHENOLATE MOFETIL [Suspect]
     Active Substance: MYCOPHENOLATE MOFETIL
     Indication: Autoimmune hepatitis
  2. BUDESONIDE [Suspect]
     Active Substance: BUDESONIDE
     Indication: Autoimmune hepatitis
     Route: 048

REACTIONS (4)
  - Cytomegalovirus gastritis [Recovered/Resolved]
  - Cytomegalovirus duodenitis [Recovered/Resolved]
  - Cytomegalovirus colitis [Recovered/Resolved]
  - Off label use [Unknown]
